FAERS Safety Report 8446548-4 (Version None)
Quarter: 2012Q2

REPORT INFORMATION
  Report Type: 
  Country: None (occurrence: None)
  Receive Date: 20120618
  Receipt Date: 20120613
  Transmission Date: 20120825
  Serious: Yes (Death, Other)
  Sender: FDA-Public Use
  Company Number: US-ELI_LILLY_AND_COMPANY-US201003000567

PATIENT
  Sex: Male
  Weight: 71.202 kg

DRUGS (22)
  1. PROTONIX [Concomitant]
     Dosage: UNK
  2. DDAVP [Concomitant]
     Dosage: 0.1 MG, UNK
     Route: 048
  3. LANTUS [Concomitant]
  4. ZANTAC [Concomitant]
     Dosage: 200
  5. XANAX [Concomitant]
  6. SOMATROPIN [Suspect]
     Indication: HYPOPITUITARISM
     Dosage: 0.5 MG, DAILY (1/D)
     Route: 058
     Dates: start: 20090102, end: 20100210
  7. MULTI-VITAMIN [Concomitant]
  8. PREDNISONE [Concomitant]
     Dosage: 10 MG, UNK
  9. LEVOTHYROXINE SODIUM [Concomitant]
     Dosage: 0.75 MG, UNK
  10. PRANDIN [Concomitant]
  11. FIBERCON [Concomitant]
  12. ACIPHEX [Concomitant]
  13. METFORMIN [Concomitant]
  14. CRESTOR [Concomitant]
     Dosage: UNK UNK, EACH MORNING
  15. PRILOSEC [Concomitant]
  16. ACTOS [Concomitant]
  17. JANUVIA [Concomitant]
  18. TESTOSTERONE [Concomitant]
     Dosage: 8 MG, UNK
     Route: 058
  19. ASPIRIN [Concomitant]
  20. STOOL SOFTENER [Concomitant]
  21. CALCIUM CARBONATE [Concomitant]
  22. TRAZODONE HCL [Concomitant]
     Dosage: UNK UNK, TID

REACTIONS (1)
  - MANTLE CELL LYMPHOMA [None]
